FAERS Safety Report 7128224-3 (Version None)
Quarter: 2010Q4

REPORT INFORMATION
  Report Type: 
  Country: None (occurrence: None)
  Receive Date: 20101130
  Receipt Date: 20101124
  Transmission Date: 20110411
  Serious: Yes (Hospitalization)
  Sender: FDA-Public Use
  Company Number: US-AMGEN-USACT2010006099

PATIENT
  Sex: Female

DRUGS (7)
  1. PEGFILGRASTIM [Suspect]
     Indication: BREAST CANCER
  2. BEVACIZUMAB [Suspect]
     Indication: BREAST CANCER
     Dosage: UNK
     Dates: start: 20101025
  3. CYCLOPHOSPHAMIDE [Suspect]
     Indication: BREAST CANCER
     Dosage: UNK
     Dates: start: 20101025
  4. DOCETAXEL [Suspect]
     Dosage: UNK
     Dates: start: 20101025
  5. VERAPAMIL [Concomitant]
  6. CITALOPRAM HYDROBROMIDE [Concomitant]
  7. VITAMIN D [Concomitant]

REACTIONS (1)
  - PAIN [None]
